FAERS Safety Report 7978544-5 (Version None)
Quarter: 2011Q4

REPORT INFORMATION
  Report Type: 
  Country: None (occurrence: None)
  Receive Date: 20111214
  Receipt Date: 20111206
  Transmission Date: 20120403
  Serious: Yes (Hospitalization, Other)
  Sender: FDA-Public Use
  Company Number: FR-JNJFOC-20111204204

PATIENT
  Sex: Male

DRUGS (4)
  1. TERCIAN [Concomitant]
     Route: 065
  2. CYCLOPHOSPHAMIDE [Concomitant]
     Route: 065
  3. MORPHINE SULFATE [Suspect]
     Indication: PRODUCT USED FOR UNKNOWN INDICATION
     Route: 048
  4. DURAGESIC-100 [Suspect]
     Indication: BACK PAIN
     Route: 062
     Dates: start: 20110919

REACTIONS (6)
  - ASTHENIA [None]
  - INSOMNIA [None]
  - GENERAL PHYSICAL HEALTH DETERIORATION [None]
  - NAUSEA [None]
  - VOMITING [None]
  - HYPERHIDROSIS [None]
